FAERS Safety Report 24290292 (Version 1)
Quarter: 2024Q3

REPORT INFORMATION
  Report Type: Spontaneous
  Country: US (occurrence: None)
  Receive Date: 20240905
  Receipt Date: 20240905
  Transmission Date: 20241016
  Serious: Yes (unspecified)
  Sender: Public
  Company Number: None

PATIENT
  Age: 66 Year
  Sex: Female

DRUGS (1)
  1. ACTEMRA [Suspect]
     Active Substance: TOCILIZUMAB
     Dates: start: 20240304, end: 20240905

REACTIONS (2)
  - Therapy interrupted [None]
  - White blood cell count decreased [None]

NARRATIVE: CASE EVENT DATE: 20240820
